FAERS Safety Report 17161620 (Version 2)
Quarter: 2020Q1

REPORT INFORMATION
  Report Type: Spontaneous
  Country: TN (occurrence: TN)
  Receive Date: 20191217
  Receipt Date: 20200123
  Transmission Date: 20200409
  Serious: Yes (Other)
  Sender: FDA-Public Use
  Company Number: TN-LUPIN PHARMACEUTICALS INC.-2019-06882

PATIENT
  Age: 50 Year
  Sex: Female

DRUGS (1)
  1. HYDROXYCHLOROQUINE [Suspect]
     Active Substance: HYDROXYCHLOROQUINE
     Indication: SYSTEMIC LUPUS ERYTHEMATOSUS
     Dosage: 200 MILLIGRAM, QD (DAILY DOSE OF 3 MG/KG/DAY WITH A CUMULATIVE DOSE OF 730 GRAM)
     Route: 065

REACTIONS (1)
  - Retinopathy [Unknown]
